FAERS Safety Report 4994325-9 (Version None)
Quarter: 2006Q2

REPORT INFORMATION
  Report Type: 
  Country: None (occurrence: None)
  Receive Date: 20060503
  Receipt Date: 20060424
  Transmission Date: 20061013
  Serious: Yes (Hospitalization)
  Sender: FDA-Public Use
  Company Number: 2006-03-0088

PATIENT
  Age: 57 Year
  Sex: Female
  Weight: 65 kg

DRUGS (2)
  1. RIBAVIRIN [Suspect]
     Indication: HEPATITIS C
     Dosage: 1000 MG ORAL
     Route: 048
     Dates: start: 20051021, end: 20060216
  2. INFERAX (INTERFERON ALFACON-1) INJECTABLE [Suspect]
     Indication: HEPATITIS C
     Dosage: 9 MCG OD SUBCUTANEOUS
     Route: 058
     Dates: start: 20051021, end: 20060216

REACTIONS (3)
  - EYE DISORDER [None]
  - FACTOR V LEIDEN MUTATION [None]
  - VENOUS THROMBOSIS [None]
